FAERS Safety Report 4664731-0 (Version None)
Quarter: 2005Q2

REPORT INFORMATION
  Report Type: 
  Country: None (occurrence: None)
  Receive Date: 20050516
  Receipt Date: 19760419
  Transmission Date: 20051028
  Serious: Yes (Death, Hospitalization)
  Sender: FDA-Public Use
  Company Number: FRWYE619526APR05

PATIENT
  Age: 28 Year
  Sex: Male

DRUGS (7)
  1. OXAZEPAM [Suspect]
     Dosage: 50 MG 3X PER 1 DAY, ORAL
     Route: 048
     Dates: start: 20050408, end: 20050409
  2. ARTANE [Suspect]
     Dates: end: 20050409
  3. PRAZEPAM [Suspect]
     Dates: end: 20050409
  4. CLONAZEPAM [Suspect]
     Dosage: 3 MG 4X PER 1 DAY, ORAL
     Route: 048
     Dates: start: 20050408, end: 20050409
  5. SUBUTEX [Suspect]
     Dosage: 6 MG 1X PER 1 PER 1 DAY, ORAL
     Route: 048
     Dates: start: 20050408, end: 20050409
  6. TERCIAN (CYAMEMAZINE,  , 0) [Suspect]
     Dosage: 100 MG 4X PER 1 DAY, ORAL
     Route: 048
     Dates: start: 20050408, end: 20050409
  7. VENTOLINE (SALBUTAMOL,  , 0) [Suspect]
     Dosage: OCCASIONNALLY
     Dates: end: 20050409

REACTIONS (4)
  - ASPIRATION [None]
  - PROTHROMBIN TIME RATIO ABNORMAL [None]
  - SOMNOLENCE [None]
  - VOMITING [None]
